FAERS Safety Report 7921952-9 (Version None)
Quarter: 2011Q4

REPORT INFORMATION
  Report Type: 
  Country: None (occurrence: None)
  Receive Date: 20111117
  Receipt Date: 20111108
  Transmission Date: 20120403
  Serious: Yes (Hospitalization)
  Sender: FDA-Public Use
  Company Number: US-ASTRAZENECA-2010SE01065

PATIENT
  Age: 80 Year
  Sex: Female

DRUGS (3)
  1. CARDIZEM [Interacting]
     Route: 065
  2. CEFTIN [Suspect]
     Route: 065
  3. NEXIUM [Interacting]
     Route: 048

REACTIONS (9)
  - DRUG INTERACTION [None]
  - HAEMORRHAGE [None]
  - PNEUMONIA [None]
  - ADVERSE EVENT [None]
  - DYSGEUSIA [None]
  - MYOCARDIAL INFARCTION [None]
  - ILL-DEFINED DISORDER [None]
  - VOMITING [None]
  - MALAISE [None]
